FAERS Safety Report 7460255-6 (Version None)
Quarter: 2011Q2

REPORT INFORMATION
  Report Type: 
  Country: None (occurrence: None)
  Receive Date: 20110505
  Receipt Date: 20110324
  Transmission Date: 20111010
  Serious: Yes (Other)
  Sender: FDA-Public Use
  Company Number: US-BAYER-2010-004421

PATIENT
  Age: 28 Year
  Sex: Female
  Weight: 74.83 kg

DRUGS (3)
  1. ALEEVE [Concomitant]
  2. YAZ [Suspect]
     Indication: PRODUCT USED FOR UNKNOWN INDICATION
     Dosage: UNK
     Dates: start: 20090619, end: 20090815
  3. SEASONIQUE [Concomitant]
     Dosage: UNK
     Dates: start: 20090801

REACTIONS (8)
  - CHOLECYSTITIS [None]
  - VOMITING [None]
  - HEADACHE [None]
  - ABDOMINAL PAIN [None]
  - INJURY [None]
  - NAUSEA [None]
  - CHOLELITHIASIS [None]
  - CHEST PAIN [None]
